FAERS Safety Report 8209146-3 (Version None)
Quarter: 2012Q1

REPORT INFORMATION
  Report Type: 
  Country: None (occurrence: None)
  Receive Date: 20120314
  Receipt Date: 20120305
  Transmission Date: 20120608
  Serious: Yes (Hospitalization, Other)
  Sender: FDA-Public Use
  Company Number: US-BAYER-2011-105734

PATIENT
  Age: 18 Year
  Sex: Female
  Weight: 52.154 kg

DRUGS (2)
  1. YASMIN [Suspect]
     Indication: PELVIC PAIN
     Dosage: UNK
     Route: 048
     Dates: start: 20070601, end: 20100601
  2. PROPOXYPHENE HCL AND ACETAMINOPHEN [Concomitant]

REACTIONS (3)
  - INJURY [None]
  - CHOLECYSTITIS CHRONIC [None]
  - GALLBLADDER DISORDER [None]
